FAERS Safety Report 5226098-9 (Version None)
Quarter: 2007Q1

REPORT INFORMATION
  Report Type: 
  Country: None (occurrence: None)
  Receive Date: 20070201
  Receipt Date: 20070131
  Transmission Date: 20070707
  Serious: Yes (Death)
  Sender: FDA-Public Use
  Company Number: HQWYE578125OCT06

PATIENT
  Age: 78 Year
  Sex: Female

DRUGS (1)
  1. ADVIL [Suspect]
     Indication: GROIN PAIN
     Dosage: UNKNOWN
     Route: 048
     Dates: start: 20051201

REACTIONS (1)
  - DEATH [None]
